FAERS Safety Report 24450363 (Version 1)
Quarter: 2024Q4

REPORT INFORMATION
  Report Type: Spontaneous
  Country: US (occurrence: US)
  Receive Date: 20241017
  Receipt Date: 20241017
  Transmission Date: 20250115
  Serious: Yes (Life-Threatening)
  Sender: BOEHRINGER INGELHEIM
  Company Number: US-Komodo Health-a23aa000003lTT4AAM

PATIENT

DRUGS (1)
  1. JARDIANCE [Suspect]
     Active Substance: EMPAGLIFLOZIN
     Indication: Product used for unknown indication

REACTIONS (1)
  - Nephrectomy [Unknown]
